FAERS Safety Report 15150709 (Version 1)
Quarter: 2018Q3

REPORT INFORMATION
  Report Type: Spontaneous
  Country: AU (occurrence: AU)
  Receive Date: 20180716
  Receipt Date: 20180716
  Transmission Date: 20181010
  Serious: Yes (Other)
  Sender: FDA-Public Use
  Company Number: AU-MYLANLABS-2018M1052164

PATIENT
  Age: 35 Year
  Sex: Female

DRUGS (8)
  1. CEFTAZIDIME. [Suspect]
     Active Substance: CEFTAZIDIME
     Indication: BURKHOLDERIA PSEUDOMALLEI INFECTION
     Dosage: 6 G, QD
  2. NIFEDIPINE. [Suspect]
     Active Substance: NIFEDIPINE
     Indication: UTERINE CONTRACTIONS DURING PREGNANCY
     Dosage: UNK
  3. AMOXICILLIN/POTASSIUM CLAVULANATE [Suspect]
     Active Substance: AMOXICILLIN\CLAVULANATE POTASSIUM
     Indication: BURKHOLDERIA PSEUDOMALLEI INFECTION
     Dosage: 1 DF, BID (AMOXICILLIN 875 MG/CLAVULANIC ACID 125 MG)
     Route: 048
  4. MEROPENEM. [Suspect]
     Active Substance: MEROPENEM
     Indication: PNEUMONIA
  5. CEFTAZIDIME. [Suspect]
     Active Substance: CEFTAZIDIME
     Indication: PNEUMONIA
  6. AMOXICILLIN/POTASSIUM CLAVULANATE [Suspect]
     Active Substance: AMOXICILLIN\CLAVULANATE POTASSIUM
     Indication: PNEUMONIA
  7. MEROPENEM. [Suspect]
     Active Substance: MEROPENEM
     Indication: BURKHOLDERIA PSEUDOMALLEI INFECTION
     Dosage: 1 G, Q8H
     Route: 042
  8. MAGNESIUM [Suspect]
     Active Substance: MAGNESIUM
     Indication: PROPHYLAXIS
     Dosage: UNK

REACTIONS (9)
  - Maternal exposure during pregnancy [Recovered/Resolved]
  - Premature labour [Recovered/Resolved]
  - Suprapubic pain [None]
  - C-reactive protein increased [None]
  - Premature delivery [Recovered/Resolved]
  - Night sweats [None]
  - Pyrexia [None]
  - Shortened cervix [None]
  - Polyhydramnios [None]
